FAERS Safety Report 7766861-3 (Version None)
Quarter: 2011Q3

REPORT INFORMATION
  Report Type: 
  Country: None (occurrence: None)
  Receive Date: 20110922
  Receipt Date: 20110920
  Transmission Date: 20111222
  Serious: No
  Sender: FDA-Public Use
  Company Number: US-PFIZER INC-2011223495

PATIENT
  Age: 15 Year
  Sex: Female
  Weight: 49.887 kg

DRUGS (1)
  1. ADVIL LIQUI-GELS [Suspect]
     Indication: GASTROENTERITIS VIRAL
     Dosage: 200 MG, UNK
     Route: 048
     Dates: start: 20110917, end: 20110920

REACTIONS (1)
  - DRUG INEFFECTIVE [None]
